FAERS Safety Report 5121410-3 (Version None)
Quarter: 2006Q4

REPORT INFORMATION
  Report Type: 
  Country: None (occurrence: None)
  Receive Date: 20061002
  Receipt Date: 20060913
  Transmission Date: 20070319
  Serious: Yes (Hospitalization)
  Sender: FDA-Public Use
  Company Number: US200609004404

PATIENT
  Age: 8 Year
  Sex: Male

DRUGS (3)
  1. STRATTERA [Suspect]
     Dosage: 60 MG,
  2. ZOLOFT [Concomitant]
  3. CYPROHEPTADINE HCL [Concomitant]

REACTIONS (1)
  - HALLUCINATION, AUDITORY [None]
